FAERS Safety Report 4403010-3 (Version None)
Quarter: 2004Q3

REPORT INFORMATION
  Report Type: 
  Country: None (occurrence: None)
  Receive Date: 20040721
  Receipt Date: 20031031
  Transmission Date: 20050211
  Serious: No
  Sender: FDA-Public Use
  Company Number: US-GLAXOSMITHKLINE-A0432407A

PATIENT
  Age: 54 Year

DRUGS (4)
  1. IMITREX [Suspect]
     Indication: MIGRAINE
     Dosage: 1TAB PER DAY
     Route: 048
     Dates: start: 19980101
  2. CLORPRES [Concomitant]
  3. PREVACID [Concomitant]
  4. ELAVIL [Concomitant]

REACTIONS (1)
  - HEART RATE INCREASED [None]
